FAERS Safety Report 14981788 (Version 1)
Quarter: 2018Q2

REPORT INFORMATION
  Report Type: Report from Study
  Country: None (occurrence: US)
  Receive Date: 20180607
  Receipt Date: 20180607
  Transmission Date: 20180711
  Serious: Yes (Hospitalization, Other)
  Sender: FDA-Public Use
  Company Number: US-ABBVIE-18K-163-2260022-00

PATIENT
  Age: 48 Year
  Sex: Female

DRUGS (1)
  1. HUMIRA [Suspect]
     Active Substance: ADALIMUMAB
     Indication: PSORIASIS
     Route: 058
     Dates: start: 201705

REACTIONS (5)
  - Psoriasis [Unknown]
  - Fall [Unknown]
  - Tendon injury [Unknown]
  - Drug ineffective [Not Recovered/Not Resolved]
  - Foot fracture [Unknown]

NARRATIVE: CASE EVENT DATE: 20180521
